FAERS Safety Report 24564692 (Version 2)
Quarter: 2024Q4

REPORT INFORMATION
  Report Type: Spontaneous
  Country: US (occurrence: US)
  Receive Date: 20241030
  Receipt Date: 20241206
  Transmission Date: 20250114
  Serious: Yes (Other)
  Sender: BAYER HEALTHCARE LLC
  Company Number: US-BAYER-2024A151925

PATIENT

DRUGS (1)
  1. AFRIN NO DRIP ORIGINAL PUMP MIST [Suspect]
     Active Substance: OXYMETAZOLINE HYDROCHLORIDE

REACTIONS (2)
  - Drug dependence [Unknown]
  - Drug ineffective [None]
